FAERS Safety Report 18524991 (Version 3)
Quarter: 2021Q2

REPORT INFORMATION
  Report Type: Report from Study
  Country: BR (occurrence: BR)
  Receive Date: 20201119
  Receipt Date: 20210429
  Transmission Date: 20210717
  Serious: Yes (Other)
  Sender: FDA-Public Use
  Company Number: BR-TAKEDA-BR202013063

PATIENT
  Age: 54 Year
  Sex: Male
  Weight: 56 kg

DRUGS (9)
  1. ANACIN [PHENAZONE] [Concomitant]
     Indication: HYPERTENSION
     Dosage: 10 MILLIGRAM, BID
     Route: 065
  2. FACTOR VIII INHIBITOR BYPASSING FRACTION; BAXJECT II NF [Suspect]
     Active Substance: ANTI-INHIBITOR COAGULANT COMPLEX
     Dosage: 4500 INTERNATIONAL UNIT, PRN
     Route: 042
     Dates: start: 20200329
  3. HEMO?8R [Suspect]
     Active Substance: ANTIHEMOPHILIC FACTOR, HUMAN RECOMBINANT
     Indication: FACTOR VIII DEFICIENCY
     Route: 065
  4. METFORMIN [Concomitant]
     Active Substance: METFORMIN HYDROCHLORIDE
     Indication: PRODUCT USED FOR UNKNOWN INDICATION
  5. ENALAPRIL [Concomitant]
     Active Substance: ENALAPRIL
     Indication: HYPERTENSION
     Dosage: 30 MILLIGRAM
  6. FACTOR VIII INHIBITOR BYPASSING FRACTION; BAXJECT II NF [Suspect]
     Active Substance: ANTI-INHIBITOR COAGULANT COMPLEX
     Indication: FACTOR VIII DEFICIENCY
     Dosage: 4000 INTERNATIONAL UNIT, PRN
     Route: 042
  7. FACTOR VIII INHIBITOR BYPASSING FRACTION; BAXJECT II NF [Suspect]
     Active Substance: ANTI-INHIBITOR COAGULANT COMPLEX
     Dosage: 4000 INTERNATIONAL UNIT, PRN
     Route: 042
     Dates: start: 20200124
  8. FACTOR VIII INHIBITOR BYPASSING FRACTION; BAXJECT II NF [Suspect]
     Active Substance: ANTI-INHIBITOR COAGULANT COMPLEX
     Dosage: 4000 INTERNATIONAL UNIT, PRN
     Route: 042
     Dates: start: 202002
  9. FACTOR VIII INHIBITOR BYPASSING FRACTION; BAXJECT II NF [Suspect]
     Active Substance: ANTI-INHIBITOR COAGULANT COMPLEX
     Dosage: 1750 INTERNATIONAL UNIT, 2/WEEK
     Route: 042
     Dates: start: 20190422

REACTIONS (9)
  - Tooth extraction [Unknown]
  - Blood pressure increased [Unknown]
  - Hepatitis A [Unknown]
  - Weight decreased [Recovered/Resolved]
  - Post procedural complication [Recovered/Resolved]
  - Post procedural haemorrhage [Recovered/Resolved]
  - Ocular hyperaemia [Recovered/Resolved]
  - Weight increased [Unknown]
  - Anti factor VIII antibody increased [Unknown]

NARRATIVE: CASE EVENT DATE: 201912
